FAERS Safety Report 15307388 (Version 1)
Quarter: 2018Q3

REPORT INFORMATION
  Report Type: Spontaneous
  Country: US (occurrence: US)
  Receive Date: 20180822
  Receipt Date: 20180822
  Transmission Date: 20181010
  Serious: No
  Sender: FDA-Public Use
  Company Number: US-TEVA-2018-US-944999

PATIENT
  Sex: Female

DRUGS (1)
  1. VALSARTAN W/HYDROCHLOROTHIAZIDE [Suspect]
     Active Substance: HYDROCHLOROTHIAZIDE\VALSARTAN
     Dosage: DOSE STRENGTH:  160/25MG
     Route: 065

REACTIONS (2)
  - Peripheral swelling [Unknown]
  - Product use issue [Unknown]

NARRATIVE: CASE EVENT DATE: 20180801
